FAERS Safety Report 13567125 (Version 1)
Quarter: 2017Q2

REPORT INFORMATION
  Report Type: Spontaneous
  Country: US (occurrence: US)
  Receive Date: 20170521
  Receipt Date: 20170521
  Transmission Date: 20170830
  Serious: Yes (Disabling)
  Sender: FDA-Public Use
  Company Number: None

PATIENT
  Age: 55 Year
  Sex: Female
  Weight: 95.4 kg

DRUGS (14)
  1. ROBAXIN [Concomitant]
     Active Substance: METHOCARBAMOL
  2. TRAZODONE [Concomitant]
     Active Substance: TRAZODONE HYDROCHLORIDE
  3. ADVIL [Concomitant]
     Active Substance: IBUPROFEN
  4. AMITRIPTYLINE [Suspect]
     Active Substance: AMITRIPTYLINE
     Indication: DEPRESSION
     Dosage: ?          QUANTITY:30 TABLET(S);?
     Route: 048
  5. CYMBALTA [Concomitant]
     Active Substance: DULOXETINE HYDROCHLORIDE
  6. PROAIR HFA [Concomitant]
     Active Substance: ALBUTEROL SULFATE
  7. NEXIUM [Concomitant]
     Active Substance: ESOMEPRAZOLE MAGNESIUM
  8. FLOVENT [Concomitant]
     Active Substance: FLUTICASONE PROPIONATE
  9. ZOFRAN [Concomitant]
     Active Substance: ONDANSETRON HYDROCHLORIDE
  10. SYNTHROID [Concomitant]
     Active Substance: LEVOTHYROXINE SODIUM
  11. LORATADINE. [Concomitant]
     Active Substance: LORATADINE
  12. AZELASTINE [Concomitant]
     Active Substance: AZELASTINE
  13. TYLENOL EXTRA STRENGTH [Concomitant]
     Active Substance: ACETAMINOPHEN
  14. ALEVE [Concomitant]
     Active Substance: NAPROXEN SODIUM

REACTIONS (14)
  - Dry mouth [None]
  - Feeling abnormal [None]
  - Pain [None]
  - Disturbance in attention [None]
  - Emotional poverty [None]
  - Neuralgia [None]
  - Tooth loss [None]
  - Depression [None]
  - Gastrointestinal disorder [None]
  - Memory impairment [None]
  - Suicidal ideation [None]
  - Withdrawal syndrome [None]
  - Sleep disorder [None]
  - Headache [None]

NARRATIVE: CASE EVENT DATE: 20170101
